FAERS Safety Report 17271660 (Version 9)
Quarter: 2021Q4

REPORT INFORMATION
  Report Type: Other
  Country: DE (occurrence: DE)
  Receive Date: 20200115
  Receipt Date: 20211222
  Transmission Date: 20220303
  Serious: Yes (Death, Other)
  Sender: FDA-Public Use
  Company Number: DE-ROCHE-2517298

PATIENT
  Age: 41 Year
  Sex: Male
  Weight: 74 kg

DRUGS (11)
  1. OCRELIZUMAB [Suspect]
     Active Substance: OCRELIZUMAB
     Indication: Relapsing multiple sclerosis
     Route: 042
     Dates: start: 20190412, end: 20190426
  2. OCRELIZUMAB [Suspect]
     Active Substance: OCRELIZUMAB
     Route: 042
     Dates: start: 20191014, end: 20191014
  3. PREDNISOLONE [Concomitant]
     Active Substance: PREDNISOLONE
     Indication: Prophylaxis
     Route: 042
     Dates: start: 20190412, end: 20190412
  4. PREDNISOLONE [Concomitant]
     Active Substance: PREDNISOLONE
     Route: 042
     Dates: start: 20190426, end: 20190426
  5. CHOLECALCIFEROL [Concomitant]
     Active Substance: CHOLECALCIFEROL
     Indication: Vitamin D deficiency
     Route: 048
     Dates: start: 20141222
  6. MAGNESIUM [Concomitant]
     Active Substance: MAGNESIUM
     Route: 048
  7. DALFAMPRIDINE [Concomitant]
     Active Substance: DALFAMPRIDINE
     Dosage: INDICATION: IMPROVEMENT OF THE WALKING DISTANCE
     Route: 048
     Dates: start: 20120112
  8. AERIUS [Concomitant]
     Indication: Prophylaxis
     Route: 048
     Dates: start: 20190411, end: 20190413
  9. AERIUS [Concomitant]
     Indication: Prophylaxis
     Route: 048
     Dates: start: 20190425, end: 20190427
  10. RANITIDINE HYDROCHLORIDE [Concomitant]
     Active Substance: RANITIDINE HYDROCHLORIDE
     Indication: Prophylaxis
     Route: 048
     Dates: start: 20190411, end: 20190413
  11. RANITIDINE HYDROCHLORIDE [Concomitant]
     Active Substance: RANITIDINE HYDROCHLORIDE
     Indication: Prophylaxis
     Route: 048
     Dates: start: 20190425, end: 20190427

REACTIONS (8)
  - Left ventricular failure [Fatal]
  - Myocarditis [Fatal]
  - Cardiac disorder [Unknown]
  - Hyperaemia [Unknown]
  - Cardiovascular disorder [Unknown]
  - Pulmonary oedema [Unknown]
  - Brain oedema [Unknown]
  - Hypertension [Unknown]
